FAERS Safety Report 19475743 (Version 4)
Quarter: 2021Q3

REPORT INFORMATION
  Report Type: Spontaneous
  Country: US (occurrence: US)
  Receive Date: 20210629
  Receipt Date: 20210716
  Transmission Date: 20211014
  Serious: Yes (Other)
  Sender: FDA-Public Use
  Company Number: US-AMGEN-USASP2021097939

PATIENT
  Age: 75 Year
  Sex: Female

DRUGS (1)
  1. MVASI [Suspect]
     Active Substance: BEVACIZUMAB-AWWB
     Indication: ENDOMETRIAL CANCER
     Dosage: 600 MILLIGRAM
     Route: 065
     Dates: start: 20210323

REACTIONS (1)
  - Computed tomographic abscessogram [Recovered/Resolved]

NARRATIVE: CASE EVENT DATE: 20210608
